FAERS Safety Report 5452396-X (Version None)
Quarter: 2007Q3

REPORT INFORMATION
  Report Type: 
  Country: None (occurrence: None)
  Receive Date: 20070914
  Receipt Date: 20070912
  Transmission Date: 20080115
  Serious: Yes (Hospitalization)
  Sender: FDA-Public Use
  Company Number: US-BRISTOL-MYERS SQUIBB COMPANY-13440755

PATIENT
  Age: 52 Year
  Sex: Male

DRUGS (7)
  1. ARIPIPRAZOLE [Suspect]
     Indication: MAJOR DEPRESSION
     Route: 048
     Dates: start: 20060626, end: 20060705
  2. EFFEXOR [Suspect]
     Indication: MAJOR DEPRESSION
     Route: 048
     Dates: start: 20050914, end: 20060710
  3. COUMADIN [Concomitant]
     Dates: start: 19950101
  4. PRAVACHOL [Concomitant]
     Dates: start: 20050401
  5. FOSAMAX [Concomitant]
     Dates: start: 20010101
  6. FOLIC ACID [Concomitant]
  7. FLONASE [Concomitant]

REACTIONS (2)
  - ORTHOSTATIC HYPOTENSION [None]
  - SYNCOPE [None]
